FAERS Safety Report 18550677 (Version 5)
Quarter: 2021Q1

REPORT INFORMATION
  Report Type: Spontaneous
  Country: MX (occurrence: MX)
  Receive Date: 20201126
  Receipt Date: 20210101
  Transmission Date: 20210419
  Serious: Yes (Hospitalization, Other)
  Sender: FDA-Public Use
  Company Number: MX-GLAXOSMITHKLINE-MX2020AMR232628

PATIENT
  Sex: Male

DRUGS (2)
  1. NUCALA [Suspect]
     Active Substance: MEPOLIZUMAB
     Indication: CHRONIC OBSTRUCTIVE PULMONARY DISEASE
  2. NUCALA [Suspect]
     Active Substance: MEPOLIZUMAB
     Indication: ASTHMA
     Dosage: 100 MG

REACTIONS (20)
  - Illness [Unknown]
  - Dyspnoea [Unknown]
  - Post-traumatic stress disorder [Unknown]
  - Inappropriate schedule of product administration [Unknown]
  - Malaise [Unknown]
  - Pneumonia [Unknown]
  - Respiratory disorder [Unknown]
  - Adverse event [Unknown]
  - Discomfort [Unknown]
  - Fatigue [Unknown]
  - Cough [Unknown]
  - Rash macular [Unknown]
  - Oxygen saturation decreased [Unknown]
  - Asthenia [Unknown]
  - Productive cough [Unknown]
  - Respiratory arrest [Unknown]
  - Feeling abnormal [Unknown]
  - Near death experience [Unknown]
  - Fear [Unknown]
  - Product use in unapproved indication [Unknown]
